FAERS Safety Report 7941232-5 (Version None)
Quarter: 2011Q4

REPORT INFORMATION
  Report Type: 
  Country: None (occurrence: None)
  Receive Date: 20111122
  Receipt Date: 20111122
  Transmission Date: 20120403
  Serious: Yes (Other)
  Sender: FDA-Public Use
  Company Number: None

PATIENT
  Sex: Female

DRUGS (2)
  1. PEGASYS [Suspect]
     Indication: HEPATITIS C
     Dosage: 180MG WEEKLY SUB-Q
     Route: 058
     Dates: start: 20110825, end: 20111001
  2. RIBAVARIN [Suspect]
     Indication: HEPATITIS C
     Dosage: 600MG BID ORAL
     Route: 048
     Dates: start: 20110825, end: 20111001

REACTIONS (4)
  - CONFUSIONAL STATE [None]
  - DYSPNOEA [None]
  - ASTHENIA [None]
  - MOVEMENT DISORDER [None]
